FAERS Safety Report 13116818 (Version 3)
Quarter: 2017Q1

REPORT INFORMATION
  Report Type: Spontaneous
  Country: US (occurrence: US)
  Receive Date: 20170116
  Receipt Date: 20170221
  Transmission Date: 20170428
  Serious: No
  Sender: FDA-Public Use
  Company Number: US-PFIZER INC-2017012442

PATIENT
  Age: 20 Year
  Sex: Male

DRUGS (10)
  1. METHOTREXATE SODIUM. [Suspect]
     Active Substance: METHOTREXATE SODIUM
     Dosage: UNK (CONSOLIDATION CHEMOTHERAPY)
     Route: 037
     Dates: start: 201603
  2. CYTARABINE. [Suspect]
     Active Substance: CYTARABINE
     Dosage: UNK (CONSOLIDATION CHEMOTHERAPY)
     Dates: start: 201603
  3. VINCRISTINE SULFATE. [Suspect]
     Active Substance: VINCRISTINE SULFATE
     Dosage: UNK (CONSOLIDATION CHEMOTHERAPY)
     Dates: start: 201603
  4. CYTARABINE. [Suspect]
     Active Substance: CYTARABINE
     Indication: B PRECURSOR TYPE ACUTE LEUKAEMIA
     Dosage: UNK (INDUCTION CHEMOTHERAPY )
     Route: 037
     Dates: start: 201602
  5. MERCAPTOPURINE. [Suspect]
     Active Substance: MERCAPTOPURINE
     Indication: B PRECURSOR TYPE ACUTE LEUKAEMIA
     Dosage: UNK (CONSOLIDATION CHEMOTHERAPY)
     Dates: start: 201603
  6. CYCLOPHOSPHAMIDE. [Suspect]
     Active Substance: CYCLOPHOSPHAMIDE
     Indication: B PRECURSOR TYPE ACUTE LEUKAEMIA
     Dosage: UNK (CONSOLIDATION CHEMOTHERAPY)
     Dates: start: 201603
  7. PEG/L-ASPARAGINASE [Suspect]
     Active Substance: PEGASPARGASE
     Indication: B PRECURSOR TYPE ACUTE LEUKAEMIA
     Dosage: UNK (INDUCTION CHEMOTHERAPY)
     Dates: start: 201602
  8. METHOTREXATE SODIUM. [Suspect]
     Active Substance: METHOTREXATE SODIUM
     Indication: B PRECURSOR TYPE ACUTE LEUKAEMIA
     Dosage: UNK (INDUCTION CHEMOTHERAPY)
     Route: 037
     Dates: start: 201602
  9. PEG/L-ASPARAGINASE [Suspect]
     Active Substance: PEGASPARGASE
     Dosage: UNK (CONSOLIDATION CHEMOTHERAPY)
     Dates: start: 201603
  10. VINCRISTINE SULFATE. [Suspect]
     Active Substance: VINCRISTINE SULFATE
     Indication: B PRECURSOR TYPE ACUTE LEUKAEMIA
     Dosage: UNK (INDUCTION CHEMOTHERAPY )
     Dates: start: 201602

REACTIONS (1)
  - Neoplasm progression [Unknown]

NARRATIVE: CASE EVENT DATE: 201603
